FAERS Safety Report 11776627 (Version 1)
Quarter: 2015Q4

REPORT INFORMATION
  Report Type: Spontaneous
  Country: US (occurrence: None)
  Receive Date: 20151123
  Receipt Date: 20151123
  Transmission Date: 20160304
  Serious: Yes (Hospitalization)
  Sender: FDA-Public Use
  Company Number: None

PATIENT
  Age: 62 Year
  Sex: Male
  Weight: 88.7 kg

DRUGS (1)
  1. PRAZOSIN [Suspect]
     Active Substance: PRAZOSIN
     Indication: NIGHTMARE
     Route: 048
     Dates: start: 20130305, end: 20150831

REACTIONS (6)
  - Overdose [None]
  - Hallucination [None]
  - Fall [None]
  - Drug screen positive [None]
  - Orthostatic hypotension [None]
  - Asthenia [None]

NARRATIVE: CASE EVENT DATE: 20150831
